FAERS Safety Report 9124096 (Version 1)
Quarter: 2013Q1

REPORT INFORMATION
  Report Type: Spontaneous
  Country: US (occurrence: US)
  Receive Date: 20130227
  Receipt Date: 20130227
  Transmission Date: 20140127
  Serious: No
  Sender: FDA-Public Use
  Company Number: US-MYLANLABS-2012S1024989

PATIENT
  Age: 66 Year
  Sex: Female
  Weight: 68.95 kg

DRUGS (4)
  1. VALACYCLOVIR HYDROCHLORIDE [Suspect]
     Indication: GENITAL HERPES
     Dosage: TIMES 5 DAYS WITH OUTBREAKS
     Route: 048
     Dates: start: 20121008
  2. VALACYCLOVIR HYDROCHLORIDE [Suspect]
     Indication: GENITAL HERPES
     Route: 048
     Dates: start: 20121129, end: 20121202
  3. CALCIUM [Concomitant]
  4. MVI [Concomitant]

REACTIONS (4)
  - Drug ineffective [Recovering/Resolving]
  - Genital herpes [Recovering/Resolving]
  - Nausea [Recovered/Resolved]
  - Throat irritation [Recovered/Resolved]
